FAERS Safety Report 24071519 (Version 1)
Quarter: 2024Q3

REPORT INFORMATION
  Report Type: Report from Study
  Country: JP (occurrence: JP)
  Receive Date: 20240710
  Receipt Date: 20240710
  Transmission Date: 20241017
  Serious: No
  Sender: ROCHE
  Company Number: JP-CHUGAI-2022000100

PATIENT
  Age: 13 Year
  Sex: Female
  Weight: 18.1 kg

DRUGS (7)
  1. EVRYSDI [Suspect]
     Active Substance: RISDIPLAM
     Indication: Spinal muscular atrophy
     Dosage: 4.5 MILLIGRAM, QD, ROUTE OF ADMINISTRATION: GASTRIC FISTULA
     Route: 050
     Dates: start: 20211110, end: 20220201
  2. EVRYSDI [Suspect]
     Active Substance: RISDIPLAM
     Dosage: 4.8 MILLIGRAM, QD
     Route: 050
     Dates: start: 20220202, end: 20220510
  3. EVRYSDI [Suspect]
     Active Substance: RISDIPLAM
     Dosage: 5 MILLIGRAM, QD
     Route: 050
     Dates: start: 20220511
  4. CARBOCYSTEINE [Concomitant]
     Active Substance: CARBOCYSTEINE
     Dosage: UNK
     Dates: start: 20231013
  5. MOVICOL [Concomitant]
     Active Substance: POLYETHYLENE GLYCOL 3350\POTASSIUM CHLORIDE\SODIUM BICARBONATE\SODIUM CHLORIDE
     Dosage: UNK
     Route: 065
     Dates: end: 20211114
  6. HYALURONATE SODIUM [Concomitant]
     Active Substance: HYALURONATE SODIUM
     Dosage: UNK
     Route: 047
  7. ERYTHROCIN LACTOBIONATE [Concomitant]
     Active Substance: ERYTHROMYCIN LACTOBIONATE
     Dosage: UNK
     Route: 061

REACTIONS (3)
  - Skin erosion [Unknown]
  - Diarrhoea [Recovered/Resolved]
  - Off label use [Unknown]

NARRATIVE: CASE EVENT DATE: 20211113
